FAERS Safety Report 4554291-7 (Version None)
Quarter: 2005Q1

REPORT INFORMATION
  Report Type: 
  Country: None (occurrence: None)
  Receive Date: 20050118
  Receipt Date: 20050110
  Transmission Date: 20050727
  Serious: Yes (Other)
  Sender: FDA-Public Use
  Company Number: 2004108860

PATIENT
  Age: 60 Year
  Sex: Female

DRUGS (4)
  1. ZYBAN [Suspect]
     Route: 048
  2. NICORETTE [Suspect]
     Indication: DRUG USE FOR UNKNOWN INDICATION
     Dates: start: 20041115, end: 20041118
  3. NICORETTE [Suspect]
     Indication: DRUG USE FOR UNKNOWN INDICATION
     Dates: start: 20041115, end: 20041118
  4. NICORETTE [Suspect]
     Indication: DRUG USE FOR UNKNOWN INDICATION
     Dates: start: 20041118

REACTIONS (2)
  - DEMENTIA [None]
  - WEIGHT INCREASED [None]
